FAERS Safety Report 9659484 (Version 1)
Quarter: 2013Q4

REPORT INFORMATION
  Report Type: Report from Study
  Country: CA (occurrence: CA)
  Receive Date: 20131031
  Receipt Date: 20131031
  Transmission Date: 20140711
  Serious: Yes (Other)
  Sender: FDA-Public Use
  Company Number: PHHY2013CA122825

PATIENT
  Age: 87 Year
  Sex: Female

DRUGS (4)
  1. ACLASTA [Suspect]
     Indication: OSTEOPOROSIS
     Dosage: UNK
     Route: 042
     Dates: start: 20090626
  2. ACLASTA [Suspect]
     Dosage: UNK
     Route: 042
     Dates: start: 20100823
  3. ACLASTA [Suspect]
     Dosage: UNK
     Route: 042
     Dates: start: 20110819
  4. ACLASTA [Suspect]
     Dosage: UNK
     Route: 042
     Dates: start: 20120822

REACTIONS (2)
  - Hip fracture [Unknown]
  - Mobility decreased [Unknown]
